FAERS Safety Report 24371998 (Version 2)
Quarter: 2024Q4

REPORT INFORMATION
  Report Type: Spontaneous
  Country: GB (occurrence: GB)
  Receive Date: 20240927
  Receipt Date: 20241022
  Transmission Date: 20250114
  Serious: Yes (Hospitalization)
  Sender: TEVA
  Company Number: GB-RELONP-2024SCRC060692

PATIENT
  Age: 64 Year
  Sex: Female
  Weight: 26 kg

DRUGS (1)
  1. PREDNISOLONE [Suspect]
     Active Substance: PREDNISOLONE
     Indication: Oral lichen planus
     Dosage: 4 TABLETS ONCE
     Route: 065
     Dates: start: 20240825, end: 20240831

REACTIONS (15)
  - Paralysis [Recovered/Resolved]
  - Adrenocortical insufficiency acute [Recovered/Resolved]
  - Steroid withdrawal syndrome [Recovered/Resolved]
  - Chest pain [Recovered/Resolved]
  - Circulatory collapse [Recovered/Resolved]
  - Vomiting [Recovered/Resolved]
  - Dizziness [Recovered/Resolved]
  - Panic attack [Recovered/Resolved]
  - Dyspepsia [Recovered/Resolved]
  - Nausea [Recovered/Resolved]
  - Hypotension [Recovered/Resolved]
  - Confusional state [Recovered/Resolved]
  - Malaise [Recovered/Resolved]
  - Fatigue [Recovered/Resolved]
  - Impaired work ability [Recovered/Resolved]

NARRATIVE: CASE EVENT DATE: 20240901
